FAERS Safety Report 7755424-1 (Version None)
Quarter: 2011Q3

REPORT INFORMATION
  Report Type: 
  Country: None (occurrence: None)
  Receive Date: 20110916
  Receipt Date: 20110906
  Transmission Date: 20111222
  Serious: Yes (Hospitalization)
  Sender: FDA-Public Use
  Company Number: CA-JNJFOC-20110903028

PATIENT
  Sex: Male
  Weight: 82.7 kg

DRUGS (4)
  1. TYLENOL-500 [Concomitant]
     Route: 065
  2. PERCOCET [Concomitant]
     Route: 065
  3. REMICADE [Suspect]
     Indication: ANKYLOSING SPONDYLITIS
     Route: 042
     Dates: start: 20050422
  4. ALL OTHER THERAPEUTIC PRODUCT [Concomitant]
     Route: 065

REACTIONS (1)
  - UPPER LIMB FRACTURE [None]
